FAERS Safety Report 12166540 (Version 1)
Quarter: 2016Q1

REPORT INFORMATION
  Report Type: Report from Study
  Country: US (occurrence: US)
  Receive Date: 20160309
  Receipt Date: 20160309
  Transmission Date: 20160526
  Serious: Yes (Hospitalization, Other)
  Sender: FDA-Public Use
  Company Number: US-AMGEN-USASL2016018343

PATIENT
  Age: 57 Year
  Sex: Male

DRUGS (1)
  1. KYPROLIS [Suspect]
     Active Substance: CARFILZOMIB
     Indication: PRODUCT USED FOR UNKNOWN INDICATION
     Dosage: UNK
     Route: 065

REACTIONS (11)
  - Dyspnoea [Unknown]
  - Fluid replacement [Unknown]
  - Diarrhoea [Unknown]
  - Tremor [Unknown]
  - Infusion site extravasation [Unknown]
  - Poor venous access [Unknown]
  - Headache [Unknown]
  - Pancreatitis [Unknown]
  - Nervousness [Unknown]
  - Constipation [Unknown]
  - Feeling abnormal [Unknown]
